FAERS Safety Report 20597836 (Version 1)
Quarter: 2022Q1

REPORT INFORMATION
  Report Type: Spontaneous
  Country: JP (occurrence: JP)
  Receive Date: 20220315
  Receipt Date: 20220315
  Transmission Date: 20220423
  Serious: Yes (Life-Threatening)
  Sender: FDA-Public Use
  Company Number: JP-PFIZER INC-202200377086

PATIENT
  Age: 63 Year
  Sex: Female

DRUGS (2)
  1. INLYTA [Suspect]
     Active Substance: AXITINIB
     Dosage: UNK
     Route: 048
  2. BAVENCIO [Suspect]
     Active Substance: AVELUMAB
     Dosage: UNK
     Route: 041
     Dates: start: 202011

REACTIONS (1)
  - Hyperglycaemia [Unknown]
